FAERS Safety Report 4699760-4 (Version None)
Quarter: 2005Q2

REPORT INFORMATION
  Report Type: 
  Country: None (occurrence: None)
  Receive Date: 20050126
  Receipt Date: 20050126
  Transmission Date: 20051028
  Serious: Yes (Other)
  Sender: FDA-Public Use
  Company Number: None

PATIENT
  Sex: Female
  Weight: 74.3899 kg

DRUGS (1)
  1. OXYCODONE HCL [Suspect]
     Dosage: 40 MG NOON + PM   80 MG 2 BID

REACTIONS (7)
  - DIABETIC NEUROPATHY [None]
  - DIARRHOEA [None]
  - DRUG EFFECT DECREASED [None]
  - PANCREATIC DISORDER [None]
  - PHARMACEUTICAL PRODUCT COMPLAINT [None]
  - SEDATION [None]
  - VOMITING [None]
